FAERS Safety Report 8980011 (Version 1)
Quarter: 2012Q4

REPORT INFORMATION
  Report Type: 
  Country: US (occurrence: US)
  Receive Date: 20121221
  Receipt Date: 20121221
  Transmission Date: 20130627
  Serious: Yes (Other)
  Sender: FDA-Public Use
  Company Number: PHHY2012US033377

PATIENT
  Age: 69 Year
  Sex: Female

DRUGS (5)
  1. BUFFERIN REGULAR STRENGTH [Suspect]
     Indication: PAIN
     Dosage: 2 in am and 2 in pm
     Route: 048
     Dates: start: 1960
  2. BUFFERIN REGULAR STRENGTH [Suspect]
     Dosage: 1 DF, UNK
     Dates: start: 1992, end: 201203
  3. EQUATE (ACETYLSALICYLIC ACID) [Concomitant]
     Indication: MYALGIA
     Dosage: 4 DF, (2 in am and 2 in pm)
     Route: 048
  4. POTASSIUM [Concomitant]
     Dosage: 4 DF, per day
  5. THYROID THERAPY [Concomitant]
     Indication: THYROID DISORDER
     Dosage: 50 ug, per day
     Route: 048

REACTIONS (14)
  - Bundle branch block left [Not Recovered/Not Resolved]
  - Bronchitis chronic [Recovered/Resolved]
  - Osteoporosis [Unknown]
  - Pleurisy [Recovered/Resolved]
  - Goitre [Not Recovered/Not Resolved]
  - Middle ear effusion [Unknown]
  - Joint swelling [Not Recovered/Not Resolved]
  - Foot fracture [Recovered/Resolved]
  - Upper limb fracture [Recovered/Resolved]
  - Bronchitis viral [Recovered/Resolved]
  - Cough [Recovered/Resolved]
  - Influenza [Recovered/Resolved]
  - Discomfort [Recovered/Resolved]
  - Incorrect drug administration duration [Unknown]
